FAERS Safety Report 21184128 (Version 3)
Quarter: 2022Q4

REPORT INFORMATION
  Report Type: Report from Study
  Country: NL (occurrence: NL)
  Receive Date: 20220808
  Receipt Date: 20221031
  Transmission Date: 20230113
  Serious: Yes (Death, Other)
  Sender: FDA-Public Use
  Company Number: NL-NOVARTISPH-NVSC2022NL177860

PATIENT
  Age: 52 Year
  Sex: Male
  Weight: 66 kg

DRUGS (1)
  1. CAPMATINIB [Suspect]
     Active Substance: CAPMATINIB
     Indication: Non-small cell lung cancer
     Dosage: 400 MG, BID (2X 400MG)
     Route: 048
     Dates: start: 20220323, end: 20220422

REACTIONS (5)
  - Pneumonia [Fatal]
  - Chest discomfort [Fatal]
  - Dyspnoea [Fatal]
  - Vomiting [Fatal]
  - Decreased appetite [Unknown]

NARRATIVE: CASE EVENT DATE: 20220422
